FAERS Safety Report 23494490 (Version 1)
Quarter: 2024Q1

REPORT INFORMATION
  Report Type: Report from Study
  Country: CA (occurrence: CA)
  Receive Date: 20240207
  Receipt Date: 20240207
  Transmission Date: 20240409
  Serious: Yes (Other)
  Sender: FDA-Public Use
  Company Number: CA-SANDOZ-SDZ2024CA012228

PATIENT
  Age: 53 Year
  Sex: Female

DRUGS (2)
  1. HYRIMOZ [Suspect]
     Active Substance: ADALIMUMAB-ADAZ
     Indication: Crohn^s disease
     Dosage: 40 MG, PREFILLED PEN
     Route: 058
     Dates: start: 20220523, end: 202310
  2. HYRIMOZ [Suspect]
     Active Substance: ADALIMUMAB-ADAZ
     Dosage: 40 MG, PREFILLED PEN
     Route: 058

REACTIONS (1)
  - Liver abscess [Unknown]

NARRATIVE: CASE EVENT DATE: 20231001
